FAERS Safety Report 10072595 (Version 1)
Quarter: 2014Q2

REPORT INFORMATION
  Report Type: Spontaneous
  Country: DE (occurrence: None)
  Receive Date: 20140409
  Receipt Date: 20140409
  Transmission Date: 20141212
  Serious: Yes (Death)
  Sender: FDA-Public Use
  Company Number: 2014P1002716

PATIENT
  Age: 51 Year
  Sex: Male
  Weight: 68 kg

DRUGS (5)
  1. DIPHENHYDRAMINE [Suspect]
  2. METHADONE [Suspect]
  3. NICOTINE [Suspect]
  4. TETRAZEPAM [Suspect]
  5. ETHANOL [Suspect]

REACTIONS (7)
  - Completed suicide [None]
  - Skin discolouration [None]
  - Pulmonary congestion [None]
  - Arteriosclerosis [None]
  - Emphysema [None]
  - Cell death [None]
  - Toxicity to various agents [None]
